FAERS Safety Report 23545142 (Version 1)
Quarter: 2024Q1

REPORT INFORMATION
  Report Type: Spontaneous
  Country: ES (occurrence: ES)
  Receive Date: 20240220
  Receipt Date: 20240220
  Transmission Date: 20240409
  Serious: Yes (Other)
  Sender: FDA-Public Use
  Company Number: None

PATIENT

DRUGS (4)
  1. XCOPRI [Interacting]
     Active Substance: CENOBAMATE
     Indication: Petit mal epilepsy
     Dosage: 200 MG (200 MG,1 IN 24 HR)
     Route: 048
     Dates: start: 20231123
  2. VIMPAT [Interacting]
     Active Substance: LACOSAMIDE
     Indication: Petit mal epilepsy
     Dosage: 300 MG (150 MG,1 IN 12 HR)
     Route: 065
     Dates: start: 20231123, end: 20240102
  3. ESLICARBAZEPINE ACETATE [Interacting]
     Active Substance: ESLICARBAZEPINE ACETATE
     Indication: Product used for unknown indication
     Dosage: 1200 MG (1200 MG,1 IN 24 HR)
     Route: 048
     Dates: start: 20190726
  4. ESOMEPRAZOLE                       /01479303/ [Concomitant]
     Indication: Gastrooesophageal reflux disease
     Dosage: 1 AT MORNING AND 1 AT NIGHT
     Route: 048
     Dates: start: 20181204

REACTIONS (4)
  - Off label use [Not Recovered/Not Resolved]
  - Drug ineffective [Not Recovered/Not Resolved]
  - Petit mal epilepsy [Not Recovered/Not Resolved]
  - Drug interaction [Not Recovered/Not Resolved]

NARRATIVE: CASE EVENT DATE: 20240101
